FAERS Safety Report 7376235-5 (Version None)
Quarter: 2011Q1

REPORT INFORMATION
  Report Type: 
  Country: None (occurrence: None)
  Receive Date: 20110325
  Receipt Date: 20110314
  Transmission Date: 20110831
  Serious: Yes (Other)
  Sender: FDA-Public Use
  Company Number: US-BAYER-2011-023052

PATIENT
  Sex: Male

DRUGS (3)
  1. ASPIRIN [Suspect]
  2. TERAZOSIN HCL [Suspect]
  3. GABAPENTIN [Suspect]

REACTIONS (1)
  - MULTIPLE SCLEROSIS RELAPSE [None]
